FAERS Safety Report 10067894 (Version 3)
Quarter: 2014Q4

REPORT INFORMATION
  Report Type: Report from Study
  Country: US (occurrence: US)
  Receive Date: 20140409
  Receipt Date: 20141030
  Transmission Date: 20150528
  Serious: Yes (Other)
  Sender: FDA-Public Use
  Company Number: US-ACTELION-A-US2014-97036

PATIENT
  Age: 57 Year
  Sex: Female

DRUGS (3)
  1. VELETRI [Suspect]
     Active Substance: EPOPROSTENOL
     Indication: PULMONARY ARTERIAL HYPERTENSION
     Dosage: 29 UNK, UNK
     Route: 042
     Dates: start: 20130805
  2. TYVASO [Suspect]
     Active Substance: TREPROSTINIL
     Indication: PRODUCT USED FOR UNKNOWN INDICATION
     Dosage: UNK
     Route: 065
  3. SILDENAFIL. [Suspect]
     Active Substance: SILDENAFIL
     Indication: PRODUCT USED FOR UNKNOWN INDICATION
     Route: 065

REACTIONS (11)
  - Malaise [Unknown]
  - Headache [Unknown]
  - Abdominal pain upper [Unknown]
  - Condition aggravated [Unknown]
  - Depression [Unknown]
  - Somnolence [Unknown]
  - Splenomegaly [Unknown]
  - Hepatomegaly [Unknown]
  - Asthenia [Unknown]
  - Throat tightness [Unknown]
  - Pancreatic steatosis [Unknown]
